FAERS Safety Report 13160588 (Version 1)
Quarter: 2017Q1

REPORT INFORMATION
  Report Type: Spontaneous
  Country: US (occurrence: US)
  Receive Date: 20170129
  Receipt Date: 20170129
  Transmission Date: 20170428
  Serious: Yes (Hospitalization, Other)
  Sender: FDA-Public Use
  Company Number: US-TEVA-733860USA

PATIENT
  Age: 34 Year
  Sex: Male

DRUGS (2)
  1. CARISOPRODOL. [Suspect]
     Active Substance: CARISOPRODOL
     Indication: DRUG ABUSE
     Dosage: 7.5 G (15 TABLETS AT ONCE)
     Route: 048
  2. MEPROBAMATE. [Concomitant]
     Active Substance: MEPROBAMATE
     Route: 065

REACTIONS (13)
  - Hypoxia [Unknown]
  - Drug abuse [Unknown]
  - Agitation [Recovering/Resolving]
  - Seizure [Recovered/Resolved]
  - Unresponsive to stimuli [Recovering/Resolving]
  - Cyanosis [Unknown]
  - Overdose [Unknown]
  - Respiratory distress [Unknown]
  - Sinus tachycardia [Unknown]
  - Drug withdrawal syndrome [Recovering/Resolving]
  - Vomiting [Unknown]
  - Drug dependence [Unknown]
  - Aggression [Recovering/Resolving]
